FAERS Safety Report 4505940-0 (Version None)
Quarter: 2004Q4

REPORT INFORMATION
  Report Type: 
  Country: None (occurrence: None)
  Receive Date: 20041119
  Receipt Date: 20041007
  Transmission Date: 20050328
  Serious: Yes (Other)
  Sender: FDA-Public Use
  Company Number: PHBS2004BR13481

PATIENT
  Age: 84 Year
  Sex: Female
  Weight: 90 kg

DRUGS (5)
  1. NITRODERM [Suspect]
     Dosage: 1 DF/DAY
     Route: 062
     Dates: start: 20040701, end: 20040813
  2. ENALAPRIL [Concomitant]
     Indication: HYPERTENSION
     Dosage: 2 CAPS/DAY
     Route: 048
  3. LASIX [Concomitant]
     Indication: DIURETIC THERAPY
     Dosage: 1 CAP/DAY
     Route: 048
  4. DIGOXIN [Concomitant]
     Indication: CARDIAC DISORDER
  5. NOREVAN [Concomitant]
     Indication: COAGULOPATHY
     Dosage: 0.25 CAP/DAY
     Route: 048

REACTIONS (2)
  - CEREBROVASCULAR ACCIDENT [None]
  - HYPOTENSION [None]
